FAERS Safety Report 17347500 (Version 1)
Quarter: 2020Q1

REPORT INFORMATION
  Report Type: Report from Study
  Country: US (occurrence: US)
  Receive Date: 20200129
  Receipt Date: 20200129
  Transmission Date: 20200409
  Serious: No
  Sender: FDA-Public Use
  Company Number: US-EXELIXIS-CABO-19023376

PATIENT
  Sex: Female

DRUGS (23)
  1. CABOMETYX [Suspect]
     Active Substance: CABOZANTINIB S-MALATE
     Indication: METASTASES TO BONE
     Dosage: 40 MG, QD
     Route: 048
  2. VITAMIN B1 [Concomitant]
     Active Substance: THIAMINE HYDROCHLORIDE
  3. NEXIUM [Concomitant]
     Active Substance: ESOMEPRAZOLE MAGNESIUM
  4. ROPINIROLE. [Concomitant]
     Active Substance: ROPINIROLE
  5. CABOMETYX [Suspect]
     Active Substance: CABOZANTINIB S-MALATE
     Dosage: 40 MG, QD
     Route: 048
  6. AMLODIPINE [Concomitant]
     Active Substance: AMLODIPINE BESYLATE
  7. POTASSIUM [Concomitant]
     Active Substance: POTASSIUM
  8. ASPIRIN. [Concomitant]
     Active Substance: ASPIRIN
  9. NORCO [Concomitant]
     Active Substance: ACETAMINOPHEN\HYDROCODONE BITARTRATE
  10. MAGNESIUM [Concomitant]
     Active Substance: MAGNESIUM
  11. FIBERCON [Concomitant]
     Active Substance: CALCIUM POLYCARBOPHIL
  12. VITAMIN D [Concomitant]
     Active Substance: VITAMIN D NOS
  13. ZINC. [Concomitant]
     Active Substance: ZINC
  14. COLCHICINE. [Concomitant]
     Active Substance: COLCHICINE
  15. CABOMETYX [Suspect]
     Active Substance: CABOZANTINIB S-MALATE
     Indication: RENAL CANCER
     Dosage: 60 MG, QD
     Route: 048
     Dates: start: 20160920
  16. CABOMETYX [Suspect]
     Active Substance: CABOZANTINIB S-MALATE
     Dosage: 40 MG, QD
     Route: 048
  17. LOSARTAN. [Concomitant]
     Active Substance: LOSARTAN
  18. SYNTHROID [Concomitant]
     Active Substance: LEVOTHYROXINE SODIUM
  19. ALLOPURINOL. [Concomitant]
     Active Substance: ALLOPURINOL
  20. IRON [Concomitant]
     Active Substance: IRON
  21. OMEPRAZOLE. [Concomitant]
     Active Substance: OMEPRAZOLE
  22. GABAPENTIN. [Concomitant]
     Active Substance: GABAPENTIN
  23. FUROSEMIDE. [Concomitant]
     Active Substance: FUROSEMIDE

REACTIONS (2)
  - Arthropathy [Unknown]
  - Stomatitis [Unknown]
